FAERS Safety Report 7053051-5 (Version None)
Quarter: 2010Q4

REPORT INFORMATION
  Report Type: 
  Country: None (occurrence: None)
  Receive Date: 20101020
  Receipt Date: 20101015
  Transmission Date: 20110411
  Serious: Yes (Hospitalization, Other)
  Sender: FDA-Public Use
  Company Number: US-ASTRAZENECA-2008UW28745

PATIENT
  Age: 48 Year
  Sex: Male
  Weight: 108.9 kg

DRUGS (7)
  1. SEROQUEL [Suspect]
     Indication: SLEEP DISORDER
     Dosage: 1200 MG DAILY
     Route: 048
     Dates: start: 20030101, end: 20040101
  2. SEROQUEL [Suspect]
     Indication: MENTAL DISORDER
     Dosage: 1200 MG DAILY
     Route: 048
     Dates: start: 20030101, end: 20040101
  3. SEROQUEL [Suspect]
     Dosage: 300 MG TO 1200 MG
     Route: 048
     Dates: start: 20040301
  4. SEROQUEL [Suspect]
     Dosage: 300 MG TO 1200 MG
     Route: 048
     Dates: start: 20040301
  5. ZYPREXA [Concomitant]
     Indication: MENTAL DISORDER
     Dates: start: 20010101, end: 20030101
  6. GEODON [Concomitant]
     Dates: start: 20050101, end: 20090101
  7. HALDOL [Concomitant]
     Dates: start: 20040101

REACTIONS (7)
  - AUTONOMIC NEUROPATHY [None]
  - BLOOD CHOLESTEROL INCREASED [None]
  - DIABETIC COMA [None]
  - DIABETIC KETOACIDOSIS [None]
  - DIABETIC NEUROPATHY [None]
  - HYPERLIPIDAEMIA [None]
  - TYPE 2 DIABETES MELLITUS [None]
